FAERS Safety Report 5348884-7 (Version None)
Quarter: 2007Q2

REPORT INFORMATION
  Report Type: 
  Country: None (occurrence: None)
  Receive Date: 20070607
  Receipt Date: 20070605
  Transmission Date: 20071010
  Serious: Yes (Death, Hospitalization)
  Sender: FDA-Public Use
  Company Number: PHEH2007US08154

PATIENT
  Age: 76 Year
  Sex: Male

DRUGS (1)
  1. EXJADE [Suspect]
     Indication: IRON OVERLOAD

REACTIONS (6)
  - DRUG INTOLERANCE [None]
  - HEPATIC FAILURE [None]
  - HEPATIC RUPTURE [None]
  - HEPATOCELLULAR DAMAGE [None]
  - PERICARDITIS [None]
  - RASH [None]
